FAERS Safety Report 22157118 (Version 1)
Quarter: 2023Q1

REPORT INFORMATION
  Report Type: Spontaneous
  Country: RU (occurrence: RU)
  Receive Date: 20230330
  Receipt Date: 20230330
  Transmission Date: 20230417
  Serious: Yes (Hospitalization)
  Sender: FDA-Public Use
  Company Number: RU-TEVA-2023-RU-2870797

PATIENT
  Age: 11 Year
  Sex: Female
  Weight: 32.2 kg

DRUGS (30)
  1. CYCLOSPORINE [Interacting]
     Active Substance: CYCLOSPORINE
     Indication: Nephrotic syndrome
     Dosage: 100 MILLIGRAM DAILY;
     Route: 065
     Dates: start: 2018, end: 2018
  2. CYCLOSPORINE [Interacting]
     Active Substance: CYCLOSPORINE
     Dosage: 100 MILLIGRAM DAILY; RESTARTED
     Route: 065
     Dates: start: 20180614, end: 20180614
  3. CYCLOSPORINE [Interacting]
     Active Substance: CYCLOSPORINE
     Dosage: 150 MILLIGRAM DAILY; INCREASED
     Route: 065
     Dates: start: 20180615, end: 20180620
  4. CYCLOSPORINE [Interacting]
     Active Substance: CYCLOSPORINE
     Dosage: 200 MILLIGRAM DAILY; INCREASED
     Route: 065
     Dates: start: 20180621, end: 20180707
  5. PREDNISOLONE [Suspect]
     Active Substance: PREDNISOLONE
     Indication: Nephrotic syndrome
     Dosage: 55 MILLIGRAM DAILY; (2MG/KG/DAY)
     Route: 065
     Dates: start: 20180402
  6. PREDNISOLONE [Suspect]
     Active Substance: PREDNISOLONE
     Dosage: 42.2 MILLIGRAM DAILY; DOSE REDUCED
     Route: 065
     Dates: start: 201804
  7. METHYLPREDNISOLONE [Suspect]
     Active Substance: METHYLPREDNISOLONE
     Indication: Nephrotic syndrome
     Dosage: PULSE THERAPY
     Route: 065
     Dates: start: 20180411, end: 20180413
  8. ENALAPRIL [Interacting]
     Active Substance: ENALAPRIL
     Indication: Product used for unknown indication
     Route: 065
     Dates: start: 201804
  9. SPIRONOLACTONE [Interacting]
     Active Substance: SPIRONOLACTONE
     Indication: Product used for unknown indication
     Route: 065
     Dates: start: 201804
  10. RIFAMPIN [Interacting]
     Active Substance: RIFAMPIN
     Indication: Tuberculosis
     Dosage: 450 MILLIGRAM DAILY;
     Route: 041
     Dates: start: 20180601, end: 20180618
  11. RIFAMPIN [Interacting]
     Active Substance: RIFAMPIN
     Indication: Tuberculosis
     Dosage: 300 MILLIGRAM DAILY; (2 TABLETS OF 150MG ONCE DAILY).
     Route: 065
     Dates: start: 20180619, end: 20180626
  12. DIPYRIDAMOLE [Concomitant]
     Active Substance: DIPYRIDAMOLE
     Indication: Product used for unknown indication
     Route: 065
     Dates: start: 2018
  13. PENTOXIFYLLINE [Concomitant]
     Active Substance: PENTOXIFYLLINE
     Indication: Product used for unknown indication
     Route: 065
     Dates: start: 2018
  14. URSODIOL [Concomitant]
     Active Substance: URSODIOL
     Indication: Product used for unknown indication
     Route: 065
     Dates: start: 2018
  15. CALCIUM GLUCONATE [Concomitant]
     Active Substance: CALCIUM GLUCONATE
     Indication: Hypokalaemia
     Route: 042
     Dates: start: 2018
  16. BROMHEXINE [Concomitant]
     Active Substance: BROMHEXINE
     Indication: Product used for unknown indication
     Route: 065
     Dates: start: 2018
  17. LEVOFLOXACIN [Concomitant]
     Active Substance: LEVOFLOXACIN
     Indication: Product used for unknown indication
     Route: 065
     Dates: start: 2018
  18. OMEPRAZOLE [Concomitant]
     Active Substance: OMEPRAZOLE
     Indication: Product used for unknown indication
     Route: 065
     Dates: start: 2018
  19. POTASSIUM ASPARTATE [Concomitant]
     Active Substance: POTASSIUM ASPARTATE
     Indication: Product used for unknown indication
     Route: 065
     Dates: start: 2018
  20. MAGNESIUM ASPARTATE [Concomitant]
     Active Substance: MAGNESIUM ASPARTATE
     Indication: Product used for unknown indication
     Route: 065
     Dates: start: 2018
  21. CALCIUM CARBONATE\CHOLECALCIFEROL [Concomitant]
     Active Substance: CALCIUM CARBONATE\CHOLECALCIFEROL
     Indication: Product used for unknown indication
     Route: 065
     Dates: start: 2018
  22. CLARITHROMYCIN [Concomitant]
     Active Substance: CLARITHROMYCIN
     Indication: Product used for unknown indication
     Route: 065
     Dates: start: 2018
  23. Ipratropium bromide+fenoterol [Concomitant]
     Indication: Product used for unknown indication
     Route: 065
     Dates: start: 2018
  24. DIOXIDINE [Concomitant]
     Indication: Product used for unknown indication
     Route: 065
     Dates: start: 2018
  25. AMLODIPINE [Concomitant]
     Active Substance: AMLODIPINE BESYLATE
     Indication: Hypertension
     Route: 065
     Dates: start: 2018
  26. LOSARTAN [Concomitant]
     Active Substance: LOSARTAN
     Indication: Hypertension
     Route: 065
     Dates: start: 2018
  27. HEPARIN [Concomitant]
     Active Substance: HEPARIN SODIUM
     Indication: Ischaemia
     Route: 065
     Dates: start: 2018
  28. SULFAMETHOXAZOLE\TRIMETHOPRIM [Concomitant]
     Active Substance: SULFAMETHOXAZOLE\TRIMETHOPRIM
     Indication: Pneumocystis jirovecii infection
     Route: 065
     Dates: start: 2018
  29. VALPROIC ACID [Concomitant]
     Active Substance: VALPROIC ACID
     Indication: Epilepsy
     Route: 065
     Dates: start: 2018
  30. DIAZEPAM [Concomitant]
     Active Substance: DIAZEPAM
     Indication: Seizure
     Route: 065

REACTIONS (6)
  - Cushing^s syndrome [Unknown]
  - Hyperkalaemia [Recovered/Resolved]
  - Hypertension [Unknown]
  - Immunosuppressant drug level decreased [Recovered/Resolved]
  - Drug interaction [Unknown]
  - Drug ineffective [Unknown]

NARRATIVE: CASE EVENT DATE: 20180101
